FAERS Safety Report 9973114 (Version 1)
Quarter: 2014Q1

REPORT INFORMATION
  Report Type: Spontaneous
  Country: US (occurrence: US)
  Receive Date: 20140306
  Receipt Date: 20140306
  Transmission Date: 20141002
  Serious: Yes (Other)
  Sender: FDA-Public Use
  Company Number: US-BRISTOL-MYERS SQUIBB COMPANY-20333829

PATIENT
  Sex: Female

DRUGS (2)
  1. ABILIFY [Suspect]
  2. PERPHENAZINE [Suspect]

REACTIONS (1)
  - Glaucoma [Unknown]
